FAERS Safety Report 8338090-6 (Version None)
Quarter: 2012Q2

REPORT INFORMATION
  Report Type: 
  Country: None (occurrence: None)
  Receive Date: 20120504
  Receipt Date: 20120426
  Transmission Date: 20120825
  Serious: Yes (Hospitalization)
  Sender: FDA-Public Use
  Company Number: JP-VERTEX PHARMACEUTICALS INC.-AE-2012-006051

PATIENT
  Age: 49 Year
  Sex: Male

DRUGS (8)
  1. TELAVIC (TELAPREVIR) [Suspect]
     Indication: HEPATITIS C
     Route: 048
     Dates: start: 20120203, end: 20120420
  2. PEG-INTRON [Concomitant]
     Indication: HEPATITIS C
     Route: 058
     Dates: start: 20120203
  3. OLMESARTAN MEDOXOMIL [Concomitant]
     Route: 048
  4. NORVASC [Concomitant]
     Route: 048
  5. REBETOL [Concomitant]
     Route: 048
     Dates: start: 20120309
  6. REBETOL [Concomitant]
     Route: 048
     Dates: end: 20120420
  7. REBETOL [Concomitant]
     Indication: HEPATITIS C
     Route: 048
     Dates: start: 20120203, end: 20120216
  8. REBETOL [Concomitant]
     Route: 048
     Dates: start: 20120217, end: 20120308

REACTIONS (1)
  - PANCREATITIS [None]
